FAERS Safety Report 9797425 (Version 1)
Quarter: 2014Q1

REPORT INFORMATION
  Report Type: Spontaneous
  Country: US (occurrence: None)
  Receive Date: 20140102
  Receipt Date: 20140102
  Transmission Date: 20141002
  Serious: Yes (Other)
  Sender: FDA-Public Use
  Company Number: None

PATIENT
  Age: 68 Year
  Sex: Female
  Weight: 97.52 kg

DRUGS (34)
  1. PRADAXA [Suspect]
     Indication: ATRIAL FIBRILLATION
     Route: 048
     Dates: start: 20130302, end: 20130319
  2. CARVEDILOL (COREG) [Concomitant]
  3. CLONIDINE [Concomitant]
  4. DIAZEPAM (VALIUM) [Concomitant]
  5. FENOFIBRATE [Concomitant]
  6. FUROSENLIDE (LASIX) [Concomitant]
  7. HYDROCODONE-APAP [Concomitant]
  8. TABLRAN (VICODIN) [Concomitant]
  9. L-THYROXIN (SYNTHROID) [Concomitant]
  10. LOSARTAN (COZAAR) [Concomitant]
  11. NEXIUNR [Concomitant]
  12. POTASSIUM CHLORIDE [Concomitant]
  13. POTASSIUM CITRATE [Concomitant]
  14. SAVEILA [Concomitant]
  15. SERTALIN (MOTT) [Concomitant]
  16. SPIRONOLACTONE (ALDACTONE) [Concomitant]
  17. VITAMIN D [Concomitant]
  18. WARFARIN [Concomitant]
  19. PRADAXA [Concomitant]
  20. XARLETO [Concomitant]
  21. COUMADIN [Concomitant]
  22. B6 [Concomitant]
  23. CALCIUM CARBONATE [Concomitant]
  24. FLAX OIL [Concomitant]
  25. GLUCOSAMINE/CHONDROITIN [Concomitant]
  26. HYALURONIC ACID [Concomitant]
  27. L-CARNITINE [Concomitant]
  28. MULTI-VITAMINS FOR SENIORS [Concomitant]
  29. OAT BRAN [Concomitant]
  30. PRESERVISION (AREDS [Concomitant]
  31. PRIMADOPHILAS [Concomitant]
  32. REFRESH EYE DROPS [Concomitant]
  33. STOOL SOFTENER [Concomitant]
  34. SYSTANE BALANCE [Concomitant]

REACTIONS (2)
  - Gastrooesophageal reflux disease [None]
  - Abdominal discomfort [None]
